FAERS Safety Report 16917404 (Version 3)
Quarter: 2019Q4

REPORT INFORMATION
  Report Type: Spontaneous
  Country: None (occurrence: UG)
  Receive Date: 20191015
  Receipt Date: 20191122
  Transmission Date: 20200122
  Serious: Yes (Other)
  Sender: FDA-Public Use
  Company Number: UG-VIIV HEALTHCARE LIMITED-UG2019EME183068

PATIENT
  Age: 50 Year
  Sex: Female
  Weight: 74.4 kg

DRUGS (1)
  1. DOLUTEGRAVIR [Suspect]
     Active Substance: DOLUTEGRAVIR
     Indication: HIV INFECTION
     Dosage: UNK

REACTIONS (7)
  - Polyuria [Unknown]
  - Vulvovaginal candidiasis [Unknown]
  - Pollakiuria [Unknown]
  - Hyperglycaemia [Unknown]
  - Polydipsia [Unknown]
  - Diabetes mellitus [Unknown]
  - Weight decreased [Unknown]
